FAERS Safety Report 5171492-8 (Version None)
Quarter: 2006Q4

REPORT INFORMATION
  Report Type: 
  Country: None (occurrence: None)
  Receive Date: 20061213
  Receipt Date: 20060823
  Transmission Date: 20070319
  Serious: Yes (Other)
  Sender: FDA-Public Use
  Company Number: US-AMGEN-US190959

PATIENT
  Sex: Female

DRUGS (2)
  1. ENBREL [Suspect]
     Indication: RHEUMATOID ARTHRITIS
     Route: 058
     Dates: start: 20030801
  2. PLAQUENIL [Concomitant]
     Dates: start: 19830101

REACTIONS (4)
  - FEELING ABNORMAL [None]
  - INJECTION SITE ERYTHEMA [None]
  - MALIGNANT MELANOMA [None]
  - PAIN IN EXTREMITY [None]
